FAERS Safety Report 20751036 (Version 1)
Quarter: 2022Q2

REPORT INFORMATION
  Report Type: Spontaneous
  Country: US (occurrence: US)
  Receive Date: 20220426
  Receipt Date: 20220426
  Transmission Date: 20220720
  Serious: Yes (Hospitalization, Other)
  Sender: FDA-Public Use
  Company Number: US-OTSUKA-2022_024562

PATIENT
  Sex: Male

DRUGS (3)
  1. ABILIFY MAINTENA [Suspect]
     Active Substance: ARIPIPRAZOLE
     Indication: Schizoaffective disorder
     Dosage: UNK
     Route: 065
     Dates: start: 2015, end: 2016
  2. ABILIFY [Suspect]
     Active Substance: ARIPIPRAZOLE
     Indication: Schizoaffective disorder
     Dosage: 30 MG
     Route: 065
     Dates: start: 2008, end: 2016
  3. VENLAFAXINE [Suspect]
     Active Substance: VENLAFAXINE HYDROCHLORIDE
     Indication: Schizoaffective disorder
     Dosage: 300 MG
     Route: 065
     Dates: start: 2008

REACTIONS (8)
  - Unevaluable event [Unknown]
  - Suicide attempt [Unknown]
  - Adverse event [Unknown]
  - Abulia [Unknown]
  - Behaviour disorder [Unknown]
  - Gambling disorder [Unknown]
  - Divorced [Unknown]
  - Product use in unapproved indication [Unknown]
